FAERS Safety Report 14201780 (Version 3)
Quarter: 2017Q4

REPORT INFORMATION
  Report Type: Spontaneous
  Country: US (occurrence: US)
  Receive Date: 20171117
  Receipt Date: 20171229
  Transmission Date: 20180321
  Serious: Yes (Other)
  Sender: FDA-Public Use
  Company Number: US-OMEROS CORPORATION-2017OME00016

PATIENT
  Age: 81 Year
  Sex: Female

DRUGS (25)
  1. OMIDRIA [Suspect]
     Active Substance: KETOROLAC\PHENYLEPHRINE
     Indication: INTRAOCULAR LENS IMPLANT
  2. ALPRAZOLAM. [Concomitant]
     Active Substance: ALPRAZOLAM
     Dosage: 0.25 MG, 2X/DAY
     Route: 048
  3. OXYCODONE [Concomitant]
     Active Substance: OXYCODONE
     Route: 048
  4. PRESERVATIVE FREE INTRAOCULAR LIDOCAINE [Concomitant]
     Dosage: UNK UNK, ONCE
     Route: 031
     Dates: start: 20170919, end: 20170919
  5. VISCOAT [Concomitant]
     Dosage: UNK UNK, ONCE
     Route: 031
     Dates: start: 20170919, end: 20170919
  6. FUROSEMIDE. [Concomitant]
     Active Substance: FUROSEMIDE
     Dosage: 20 MG, 1X/DAY
     Route: 048
  7. GABAPENTIN. [Concomitant]
     Active Substance: GABAPENTIN
     Route: 048
  8. BESIVANCE [Concomitant]
     Active Substance: BESIFLOXACIN
     Dosage: 1 DROP, 4X/DAY BOTH EYES
     Dates: start: 20170916
  9. PANTROPRAZOLE [Concomitant]
     Dosage: 40 MG, 1X/DAY
     Route: 048
  10. STERILE SALINE [Concomitant]
     Dosage: UNK, ONCE
     Dates: start: 20170919, end: 20170919
  11. OMIDRIA [Suspect]
     Active Substance: KETOROLAC\PHENYLEPHRINE
     Indication: CATARACT OPERATION
     Dosage: UNK UNK, ONCE, RIGHT EYE
     Route: 031
     Dates: start: 20170919, end: 20170919
  12. POLYETHYLENE GLYCOL [Concomitant]
     Active Substance: POLYETHYLENE GLYCOLS
     Dosage: 4000 ML, 1X/DAY
     Route: 048
  13. ALCON BSS [Concomitant]
     Dosage: UNK, ONCE
     Dates: start: 20170919, end: 20170919
  14. BETADINE [Concomitant]
     Active Substance: POVIDONE-IODINE
     Dosage: UNK UNK, ONCE
     Route: 061
     Dates: start: 20170919, end: 20170919
  15. CARVEDILOL. [Concomitant]
     Active Substance: CARVEDILOL
     Dosage: 12.5 MG, 2X/DAY
     Route: 048
  16. DULOXETINE. [Concomitant]
     Active Substance: DULOXETINE
     Dosage: 60 MG, 1X/DAY
     Route: 048
  17. LO-DOSE ASPIRIN [Concomitant]
     Dosage: 81 MG, 1X/DAY
     Route: 048
  18. DUOVISC [Concomitant]
     Active Substance: CHONDROITIN SULFATE A\HYALURONATE SODIUM
     Dosage: UNK, ONCE
     Dates: start: 20170919, end: 20170919
  19. SULFAMETHOXAZOLE [Concomitant]
     Active Substance: SULFAMETHOXAZOLE
     Route: 048
  20. FLUTICASONE. [Concomitant]
     Active Substance: FLUTICASONE
     Dosage: 100 ?G, 1X/DAY
     Route: 045
  21. LOPERAMIDE [Concomitant]
     Active Substance: LOPERAMIDE
     Dosage: 2 MG, 6X/DAY
     Route: 048
  22. ALBUTEROL. [Concomitant]
     Active Substance: ALBUTEROL
  23. NITROGLYCERIN. [Concomitant]
     Active Substance: NITROGLYCERIN
     Dosage: 0.4 MG, AS DIRECTED
     Route: 060
  24. POTASSIUM CHLORIDE ER [Concomitant]
     Active Substance: POTASSIUM CHLORIDE
     Dosage: 10 MEQ, 2X/DAY
     Route: 048
  25. KETOROLAC [Concomitant]
     Active Substance: KETOROLAC\KETOROLAC TROMETHAMINE
     Dosage: 1 DROP, 4X/DAY, RIGHT EYE
     Dates: start: 20170916

REACTIONS (7)
  - Endophthalmitis [Recovered/Resolved]
  - Conjunctival haemorrhage [Recovered/Resolved]
  - Eye contusion [Recovered/Resolved]
  - Blepharochalasis [Recovered/Resolved]
  - Hypopyon [Recovered/Resolved]
  - Toxic anterior segment syndrome [Unknown]
  - Fibrin [Recovered/Resolved]

NARRATIVE: CASE EVENT DATE: 2017
